FAERS Safety Report 5154473-X (Version None)
Quarter: 2006Q4

REPORT INFORMATION
  Report Type: 
  Country: None (occurrence: None)
  Receive Date: 20061120
  Receipt Date: 20061110
  Transmission Date: 20070319
  Serious: Yes (Other)
  Sender: FDA-Public Use
  Company Number: CA-ABBOTT-06P-028-0350026-00

PATIENT
  Sex: Male

DRUGS (4)
  1. LIPIDIL EZ TABLETS [Suspect]
     Indication: DRUG USE FOR UNKNOWN INDICATION
     Route: 048
     Dates: start: 20060901, end: 20060901
  2. ACETYLSALICYLIC ACID SRT [Concomitant]
     Indication: CARDIOVASCULAR EVENT PROPHYLAXIS
     Dates: start: 20031101
  3. INSULIN HUMAN [Concomitant]
     Indication: DIABETES MELLITUS INSULIN-DEPENDENT
  4. ISOPHANE INSULIN [Concomitant]
     Indication: DIABETES MELLITUS INSULIN-DEPENDENT

REACTIONS (2)
  - AMNESIA [None]
  - HYPOGLYCAEMIA [None]
